FAERS Safety Report 5012178-X (Version None)
Quarter: 2006Q2

REPORT INFORMATION
  Report Type: 
  Country: None (occurrence: None)
  Receive Date: 20060526
  Receipt Date: 20060516
  Transmission Date: 20061013
  Serious: Yes (Death)
  Sender: FDA-Public Use
  Company Number: DE-ABBOTT-06P-062-0333246-00

PATIENT
  Age: 28 Year
  Sex: Female

DRUGS (8)
  1. CYCLOSPORINE [Suspect]
     Indication: IMMUNOSUPPRESSION
     Dosage: TO MAINTAIN BLOOD LEVEL OF 150-200 NG/DL
  2. CYCLOSPORINE [Suspect]
     Dosage: TO MAINTAIN BLOOD LEVEL OF 250-300 NG/DL
  3. MYCOPHENOLATE [Suspect]
     Indication: IMMUNOSUPPRESSION
  4. PREDNISONE [Suspect]
     Indication: IMMUNOSUPPRESSION
     Dosage: TAPERED, 1 IN 1 DAY
  5. PREDNISONE [Suspect]
  6. VALGANCICLOVIR HCL [Concomitant]
     Indication: ANTIVIRAL PROPHYLAXIS
  7. ITRACONAZOLE [Concomitant]
     Indication: ANTIFUNGAL PROPHYLAXIS
  8. BACTRIM [Concomitant]
     Indication: ANTIBIOTIC PROPHYLAXIS

REACTIONS (9)
  - ASPERGILLOSIS [None]
  - CARDIAC FAILURE [None]
  - CEREBRAL HAEMORRHAGE [None]
  - CEREBROVASCULAR ACCIDENT [None]
  - ENDOPHTHALMITIS [None]
  - LOSS OF CONSCIOUSNESS [None]
  - MITRAL VALVE INCOMPETENCE [None]
  - ORAL INFECTION [None]
  - PARALYSIS [None]
